FAERS Safety Report 13873223 (Version 1)
Quarter: 2017Q3

REPORT INFORMATION
  Report Type: Spontaneous
  Country: US (occurrence: US)
  Receive Date: 20170816
  Receipt Date: 20170816
  Transmission Date: 20171127
  Serious: Yes (Other)
  Sender: FDA-Public Use
  Company Number: US-AMGEN-USASP2017121362

PATIENT
  Sex: Female

DRUGS (4)
  1. GABAPENTIN. [Suspect]
     Active Substance: GABAPENTIN
     Indication: PRODUCT USED FOR UNKNOWN INDICATION
     Dosage: 300 MG, UNK (AT BEDTIME)
     Route: 065
  2. ENBREL [Suspect]
     Active Substance: ETANERCEPT
     Indication: PRODUCT USED FOR UNKNOWN INDICATION
     Dosage: UNK
     Route: 065
  3. XELJANZ [Concomitant]
     Active Substance: TOFACITINIB CITRATE
     Dosage: UNK
  4. METHYLPREDNISOLONE ACETATE. [Suspect]
     Active Substance: METHYLPREDNISOLONE ACETATE
     Indication: PRODUCT USED FOR UNKNOWN INDICATION
     Dosage: 40 MG, ONE TIME DOSE (IN THE SUBACROMIAL SPACE)
     Route: 065

REACTIONS (13)
  - Paraesthesia [Unknown]
  - Deep vein thrombosis [Unknown]
  - Drug ineffective [Unknown]
  - Joint swelling [Unknown]
  - Liver function test increased [Unknown]
  - Joint range of motion decreased [Unknown]
  - Hypoaesthesia [Unknown]
  - Back pain [Unknown]
  - Joint effusion [Unknown]
  - Synovitis [Unknown]
  - Dyspnoea [Unknown]
  - Weight increased [Unknown]
  - Arthralgia [Unknown]
